FAERS Safety Report 6078411-0 (Version None)
Quarter: 2009Q1

REPORT INFORMATION
  Report Type: 
  Country: None (occurrence: None)
  Receive Date: 20090212
  Receipt Date: 20090206
  Transmission Date: 20090719
  Serious: Yes (Death, Other)
  Sender: FDA-Public Use
  Company Number: 2008SP025437

PATIENT
  Age: 84 Year
  Sex: Male

DRUGS (4)
  1. MIRALAX [Suspect]
     Indication: CONSTIPATION
     Dosage: PO; PO
     Route: 048
     Dates: start: 20081130
  2. MIRALAX [Suspect]
     Indication: CONSTIPATION
     Dosage: PO; PO
     Route: 048
     Dates: start: 20081202
  3. ALBUTEROL [Concomitant]
  4. PREDNISONE TAB [Concomitant]

REACTIONS (2)
  - PRURITUS GENERALISED [None]
  - URTICARIA [None]
